FAERS Safety Report 5713910-X (Version None)
Quarter: 2008Q2

REPORT INFORMATION
  Report Type: 
  Country: None (occurrence: None)
  Receive Date: 20080422
  Receipt Date: 20080422
  Transmission Date: 20081010
  Serious: Yes (Death)
  Sender: FDA-Public Use
  Company Number: None

PATIENT
  Age: 66 Year
  Sex: Male

DRUGS (5)
  1. CETUXIMAB [Suspect]
     Indication: LARYNGEAL CANCER
     Dosage: 604 MG WEEKLY IV DRIP
     Route: 041
     Dates: start: 20070115, end: 20070122
  2. CETUXIMAB [Suspect]
     Indication: METASTASIS
     Dosage: 604 MG WEEKLY IV DRIP
     Route: 041
     Dates: start: 20070115, end: 20070122
  3. OXALIPLATIN [Suspect]
     Indication: LARYNGEAL CANCER
     Dosage: 186 MG EVERY 21 DAYS IV DRIP
     Route: 041
     Dates: start: 20070115, end: 20070115
  4. OXALIPLATIN [Suspect]
     Indication: METASTASIS
     Dosage: 186 MG EVERY 21 DAYS IV DRIP
     Route: 041
     Dates: start: 20070115, end: 20070115
  5. FLOUROURACIL 5 [Concomitant]

REACTIONS (8)
  - ABDOMINAL PAIN [None]
  - DEHYDRATION [None]
  - DIARRHOEA [None]
  - DISEASE PROGRESSION [None]
  - DYSPNOEA [None]
  - HYPERCALCAEMIA [None]
  - NAUSEA [None]
  - VOMITING [None]
